FAERS Safety Report 9891697 (Version 2)
Quarter: 2014Q1

REPORT INFORMATION
  Report Type: Spontaneous
  Country: US (occurrence: US)
  Receive Date: 20140212
  Receipt Date: 20140320
  Transmission Date: 20141002
  Serious: Yes (Other)
  Sender: FDA-Public Use
  Company Number: US-PFIZER INC-2014036676

PATIENT
  Age: 83 Year
  Sex: Female

DRUGS (2)
  1. LYRICA [Suspect]
     Indication: PAIN
     Dosage: 100 MG, UNK
  2. LYRICA [Suspect]
     Dosage: 150 MG, UNK

REACTIONS (7)
  - Ophthalmic herpes zoster [Unknown]
  - Corneal disorder [Unknown]
  - Herpes zoster [Unknown]
  - Skin disorder [Unknown]
  - Eye pain [Unknown]
  - Drug ineffective [Unknown]
  - Drug effect decreased [Unknown]
